FAERS Safety Report 16675330 (Version 4)
Quarter: 2019Q4

REPORT INFORMATION
  Report Type: Spontaneous
  Country: JP (occurrence: JP)
  Receive Date: 20190806
  Receipt Date: 20191018
  Transmission Date: 20200122
  Serious: Yes (Death, Hospitalization, Other)
  Sender: FDA-Public Use
  Company Number: JP-BRISTOL-MYERS SQUIBB COMPANY-BMS-2019-075804

PATIENT
  Age: 70 Year
  Sex: Male
  Weight: 61.2 kg

DRUGS (1)
  1. OPDIVO [Suspect]
     Active Substance: NIVOLUMAB
     Indication: GASTRIC CANCER
     Dosage: 240 MG
     Route: 041
     Dates: start: 20190104, end: 20190204

REACTIONS (3)
  - Chronic kidney disease [Fatal]
  - Malignant neoplasm progression [Fatal]
  - Ascites [Unknown]

NARRATIVE: CASE EVENT DATE: 20190208
